FAERS Safety Report 8982963 (Version 2)
Quarter: 2013Q1

REPORT INFORMATION
  Report Type: Spontaneous
  Country: IT (occurrence: IT)
  Receive Date: 20121224
  Receipt Date: 20130318
  Transmission Date: 20140127
  Serious: Yes (Other)
  Sender: FDA-Public Use
  Company Number: IT-BRISTOL-MYERS SQUIBB COMPANY-17226754

PATIENT
  Age: 53 Year
  Sex: Female

DRUGS (3)
  1. ERBITUX SOLN FOR INF [Suspect]
     Indication: COLON CANCER
     Route: 042
     Dates: start: 20120124, end: 20121031
  2. NORVASC [Concomitant]
     Indication: HYPERTENSION
     Dates: start: 20090101, end: 20121212
  3. NALAPRES [Concomitant]
     Indication: HYPERTENSION
     Dates: start: 20090101, end: 20121212

REACTIONS (1)
  - Oedema peripheral [Not Recovered/Not Resolved]
